FAERS Safety Report 5803267-8 (Version None)
Quarter: 2008Q3

REPORT INFORMATION
  Report Type: 
  Country: None (occurrence: None)
  Receive Date: 20080708
  Receipt Date: 20080701
  Transmission Date: 20090109
  Serious: Yes (Hospitalization, Congenital Anomaly)
  Sender: FDA-Public Use
  Company Number: A0687246A

PATIENT
  Sex: Female

DRUGS (4)
  1. PAXIL [Suspect]
     Indication: DEPRESSION
     Dosage: 30MG PER DAY
     Dates: start: 19950101, end: 20020101
  2. MULTI-VITAMIN [Concomitant]
     Dates: start: 19980101
  3. VITAMIN TAB [Concomitant]
  4. IBUPROFEN [Concomitant]

REACTIONS (8)
  - ATRIAL SEPTAL DEFECT [None]
  - CARDIAC MURMUR [None]
  - CARDIOMEGALY [None]
  - CEREBROVASCULAR ACCIDENT [None]
  - CONVULSION [None]
  - DRUG EXPOSURE DURING PREGNANCY [None]
  - HEART DISEASE CONGENITAL [None]
  - MITRAL VALVE INCOMPETENCE [None]
